FAERS Safety Report 23360619 (Version 1)
Quarter: 2024Q1

REPORT INFORMATION
  Report Type: Other
  Country: US (occurrence: None)
  Receive Date: 20240103
  Receipt Date: 20240103
  Transmission Date: 20240410
  Serious: Yes (Other)
  Sender: FDA-Public Use
  Company Number: US-ROCHE-3481082

PATIENT
  Age: 68 Year
  Sex: Female
  Weight: 98.518 kg

DRUGS (2)
  1. ACTEMRA [Suspect]
     Active Substance: TOCILIZUMAB
     Indication: Rheumatoid arthritis
     Dosage: SHE STARTED AROUND 16 OR MONTHS AGO AND HER LAST DOSE WAS ON 11/DEC/2023
     Route: 042
  2. ACTEMRA [Suspect]
     Active Substance: TOCILIZUMAB
     Indication: Rheumatoid arthritis

REACTIONS (6)
  - Synovial cyst [Recovered/Resolved]
  - Ill-defined disorder [Unknown]
  - Arthralgia [Unknown]
  - Dehiscence [Recovered/Resolved]
  - Inflammation [Unknown]
  - Tendon rupture [Unknown]
